FAERS Safety Report 4307197-2 (Version None)
Quarter: 2004Q1

REPORT INFORMATION
  Report Type: 
  Country: None (occurrence: None)
  Receive Date: 20040225
  Receipt Date: 20040213
  Transmission Date: 20041129
  Serious: Yes (Hospitalization)
  Sender: FDA-Public Use
  Company Number: JP-JNJFOC-20030802520

PATIENT
  Age: 75 Year
  Sex: Female
  Weight: 50 kg

DRUGS (2)
  1. INFLIXIMAB (INFLIXIMAB, RECOMBINANT) LYOPHILIZED POWDER [Suspect]
     Dosage: 3 MG/KG, 1 IN 1 AS NECESSARY, INTRAVENOUS DRIP
     Route: 041
     Dates: start: 20001219, end: 20001219
  2. INFLIXIMAB (INFLIXIMAB, RECOMBINANT) LYOPHILIZED POWDER [Suspect]
     Dosage: 3 MG/KG, 1 IN 1 AS NECESSARY, INTRAVENOUS DRIP
     Route: 041
     Dates: start: 20010213, end: 20010213

REACTIONS (8)
  - CELLULITIS [None]
  - FALL [None]
  - FEMUR FRACTURE [None]
  - HAEMORRHAGIC CEREBRAL INFARCTION [None]
  - MONOPLEGIA [None]
  - NEUROGENIC BLADDER [None]
  - PUTAMEN HAEMORRHAGE [None]
  - THALAMUS HAEMORRHAGE [None]
